FAERS Safety Report 5444004-9 (Version None)
Quarter: 2007Q3

REPORT INFORMATION
  Report Type: 
  Country: None (occurrence: None)
  Receive Date: 20070731
  Receipt Date: 20070620
  Transmission Date: 20080115
  Serious: No
  Sender: FDA-Public Use
  Company Number: US200706004983

PATIENT
  Age: 66 Year
  Sex: Female

DRUGS (2)
  1. BYETTA [Suspect]
     Indication: TYPE 2 DIABETES MELLITUS
     Dosage: 5 UG, 2/D, SUBCUTANEOUS
     Route: 058
     Dates: start: 20070521
  2. GLUCOPHAGE [Concomitant]

REACTIONS (4)
  - CLUMSINESS [None]
  - CONSTIPATION [None]
  - DRUG INTOLERANCE [None]
  - NERVOUSNESS [None]
